FAERS Safety Report 25715877 (Version 1)
Quarter: 2025Q3

REPORT INFORMATION
  Report Type: Spontaneous
  Country: US (occurrence: None)
  Receive Date: 20250821
  Receipt Date: 20250821
  Transmission Date: 20251020
  Serious: Yes (Disabling)
  Sender: FDA-CTU
  Company Number: None

PATIENT
  Age: 55 Year
  Sex: Female

DRUGS (2)
  1. ESTRADIOL [Suspect]
     Active Substance: ESTRADIOL
     Indication: Hormone replacement therapy
     Dates: start: 20240801, end: 20250807
  2. PROGESTERONE [Suspect]
     Active Substance: PROGESTERONE
     Dates: start: 20240801, end: 20250818

REACTIONS (7)
  - Application site burn [None]
  - Vulvovaginal burning sensation [None]
  - Chemical burn [None]
  - Loss of employment [None]
  - Economic problem [None]
  - Mental status changes [None]
  - Thrombosis [None]

NARRATIVE: CASE EVENT DATE: 20240801
